FAERS Safety Report 15351120 (Version 9)
Quarter: 2022Q1

REPORT INFORMATION
  Report Type: Report from Study
  Country: DE (occurrence: None)
  Receive Date: 20180905
  Receipt Date: 20220322
  Transmission Date: 20220423
  Serious: Yes (Hospitalization)
  Sender: FDA-Public Use
  Company Number: DE-ROCHE-2180025

PATIENT
  Age: 83 Year
  Sex: Female
  Weight: 83 kg

DRUGS (13)
  1. VEMURAFENIB [Suspect]
     Active Substance: VEMURAFENIB
     Indication: Malignant melanoma
     Dosage: LAST DOSE PRIOR TO SAE: 02/SEP/2018
     Route: 048
     Dates: start: 20180811
  2. COBIMETINIB [Suspect]
     Active Substance: COBIMETINIB
     Indication: Malignant melanoma
     Dosage: LAST DOSE PRIOR TO SAE: 01/SEP/2018
     Route: 048
     Dates: start: 20180811
  3. NORVASC [Concomitant]
     Active Substance: AMLODIPINE BESYLATE
  4. ESOMEPRAZOLE [Concomitant]
     Active Substance: ESOMEPRAZOLE
  5. KALINOR [Concomitant]
  6. CHOLECALCIFEROL [Concomitant]
     Active Substance: CHOLECALCIFEROL
  7. BECLOMETHASONE DIPROPIONATE [Concomitant]
     Active Substance: BECLOMETHASONE DIPROPIONATE
  8. METAMIZOLE [Concomitant]
     Active Substance: METAMIZOLE
  9. LEVOTHYROXINE SODIUM [Concomitant]
     Active Substance: LEVOTHYROXINE SODIUM
  10. MARCUMAR [Concomitant]
     Active Substance: PHENPROCOUMON
  11. CANDESARTAN CILEXETIL\HYDROCHLOROTHIAZIDE [Concomitant]
     Active Substance: CANDESARTAN CILEXETIL\HYDROCHLOROTHIAZIDE
  12. BISOPROLOL [Concomitant]
     Active Substance: BISOPROLOL
  13. TORSEMIDE [Concomitant]
     Active Substance: TORSEMIDE

REACTIONS (4)
  - Dyspnoea [Recovered/Resolved]
  - Malaise [Unknown]
  - Fall [Unknown]
  - Syncope [Recovered/Resolved]

NARRATIVE: CASE EVENT DATE: 20180903
